FAERS Safety Report 9474985 (Version 1)
Quarter: 2013Q3

REPORT INFORMATION
  Report Type: Report from Study
  Country: DE (occurrence: DE)
  Receive Date: 20130824
  Receipt Date: 20130824
  Transmission Date: 20140515
  Serious: Yes (Hospitalization)
  Sender: FDA-Public Use
  Company Number: DE-ROCHE-1265308

PATIENT
  Age: 69 Year
  Sex: Male

DRUGS (1)
  1. RITUXIMAB [Suspect]
     Indication: RHEUMATOID ARTHRITIS
     Dosage: LAST RITUXIMAB DOSR PRIOR COLITIS WAS ON 14/JUN/2012
     Route: 065
     Dates: start: 20120614

REACTIONS (1)
  - Colitis [Recovered/Resolved]
